FAERS Safety Report 8344727-8 (Version None)
Quarter: 2012Q2

REPORT INFORMATION
  Report Type: 
  Country: None (occurrence: None)
  Receive Date: 20120508
  Receipt Date: 20120502
  Transmission Date: 20120825
  Serious: No
  Sender: FDA-Public Use
  Company Number: US-PFIZER INC-2012108973

PATIENT
  Sex: Male

DRUGS (7)
  1. NEURONTIN [Suspect]
     Dosage: UNK
  2. PERCOCET [Suspect]
     Dosage: UNK
  3. NAPROSYN [Suspect]
     Dosage: UNK
  4. IBUPROFEN [Suspect]
     Dosage: UNK
  5. CELEBREX [Suspect]
     Dosage: UNK
  6. EXTRA STRENGTH TYLENOL [Suspect]
     Dosage: UNK
  7. TYLENOL (CAPLET) [Suspect]
     Dosage: UNK

REACTIONS (1)
  - DRUG INEFFECTIVE [None]
